FAERS Safety Report 10218704 (Version 1)
Quarter: 2014Q2

REPORT INFORMATION
  Report Type: Report from Study
  Country: AU (occurrence: AU)
  Receive Date: 20140605
  Receipt Date: 20140605
  Transmission Date: 20141212
  Serious: Yes (Other)
  Sender: FDA-Public Use
  Company Number: PHHY2014AU066882

PATIENT
  Age: 86 Year
  Sex: Male

DRUGS (1)
  1. SANDOSTATIN LAR [Suspect]
     Indication: VIPOMA
     Dosage: 30 MG, UNK
     Route: 030

REACTIONS (3)
  - Brain neoplasm [Unknown]
  - Lung neoplasm [Unknown]
  - Hepatic neoplasm [Unknown]
